FAERS Safety Report 5242640-6 (Version None)
Quarter: 2007Q1

REPORT INFORMATION
  Report Type: 
  Country: None (occurrence: None)
  Receive Date: 20070221
  Receipt Date: 20070212
  Transmission Date: 20070707
  Serious: Yes (Hospitalization)
  Sender: FDA-Public Use
  Company Number: JP-ROCHE-461898

PATIENT
  Age: 42 Year
  Sex: Male

DRUGS (11)
  1. TICLOPIDINE HCL [Suspect]
     Indication: MYOCARDIAL INFARCTION
     Dosage: INDICATIONS REPORTED AS: OLD MYOCARDIAL INFARCTION/VENTRICULAR EXTRASYSTOLES
     Route: 048
     Dates: start: 20060719, end: 20060730
  2. DIOVAN [Concomitant]
     Indication: HYPERTENSION
     Dosage: DOSE REPORTED: 1 UNIT QD
     Route: 048
  3. PRAVASTATIN SODIUM [Concomitant]
     Route: 048
  4. MESITAT [Concomitant]
     Indication: PANCREATITIS
     Route: 048
  5. ASPIRIN [Concomitant]
     Indication: VENTRICULAR EXTRASYSTOLES
     Dosage: DOSE REPORTED: 1 UNIT QD
     Route: 048
  6. AMLODIN [Concomitant]
     Indication: HYPERTENSION
     Route: 048
  7. ENZYMES [Concomitant]
     Dosage: REPORTED AS SHIN DREIASE.
     Route: 048
  8. OMEPRAL [Concomitant]
     Indication: GASTRIC ULCER HAEMORRHAGE
     Route: 048
  9. LOXONIN [Concomitant]
     Route: 048
  10. CLEANAL [Concomitant]
     Route: 048
  11. LAC-B [Concomitant]
     Dosage: DRUG REPORTED AS LAC-B (LACTOBACILLUS BIFIDUS, LYOPHILIZED)
     Route: 048

REACTIONS (2)
  - PHARYNGOLARYNGEAL DISCOMFORT [None]
  - RASH PRURITIC [None]
